FAERS Safety Report 13060840 (Version 1)
Quarter: 2016Q4

REPORT INFORMATION
  Report Type: Report from Study
  Country: None (occurrence: US)
  Receive Date: 20161225
  Receipt Date: 20161225
  Transmission Date: 20170207
  Serious: Yes (Other)
  Sender: FDA-Public Use
  Company Number: US-ABBVIE-16K-163-1736645-00

PATIENT
  Age: 63 Year
  Sex: Female

DRUGS (5)
  1. HUMIRA [Suspect]
     Active Substance: ADALIMUMAB
     Indication: COLITIS ULCERATIVE
     Dosage: DAY ONE
     Route: 058
     Dates: start: 20160907, end: 20160907
  2. HUMIRA [Suspect]
     Active Substance: ADALIMUMAB
     Route: 058
     Dates: start: 201612
  3. HUMIRA [Suspect]
     Active Substance: ADALIMUMAB
     Dosage: DAY 15
     Route: 058
     Dates: start: 20160921, end: 20160921
  4. HUMIRA [Suspect]
     Active Substance: ADALIMUMAB
     Route: 058
     Dates: start: 2016, end: 201611
  5. IRON [Suspect]
     Active Substance: IRON
     Indication: MINERAL SUPPLEMENTATION
     Route: 065
     Dates: start: 2016, end: 2016

REACTIONS (18)
  - Haemoglobin decreased [Unknown]
  - Abnormal faeces [Unknown]
  - Depression [Unknown]
  - Colitis ulcerative [Unknown]
  - Injection site bruising [Not Recovered/Not Resolved]
  - Chills [Unknown]
  - Malaise [Unknown]
  - Activities of daily living impaired [Unknown]
  - Anxiety [Unknown]
  - Pyrexia [Unknown]
  - Feeling cold [Unknown]
  - Night sweats [Unknown]
  - Platelet count decreased [Unknown]
  - Insomnia [Unknown]
  - Drug prescribing error [Unknown]
  - Pruritus [Unknown]
  - Hot flush [Unknown]
  - Injection site haemorrhage [Unknown]

NARRATIVE: CASE EVENT DATE: 2016
